FAERS Safety Report 6384008-5 (Version None)
Quarter: 2009Q4

REPORT INFORMATION
  Report Type: 
  Country: None (occurrence: None)
  Receive Date: 20091001
  Receipt Date: 20090923
  Transmission Date: 20100525
  Serious: Yes (Hospitalization)
  Sender: FDA-Public Use
  Company Number: US-PFIZER INC-2009252754

PATIENT
  Sex: Female
  Weight: 82.2 kg

DRUGS (19)
  1. SILDENAFIL CITRATE [Suspect]
     Indication: PULMONARY HYPERTENSION
     Dosage: 20 MG, 3X/DAY
     Route: 048
     Dates: start: 20080925, end: 20081104
  2. SILDENAFIL CITRATE [Suspect]
     Dosage: 40 MG, 3X/DAY
     Route: 048
     Dates: start: 20081104, end: 20081211
  3. SILDENAFIL CITRATE [Suspect]
     Dosage: 80 MG, 3X/DAY
     Route: 048
     Dates: start: 20081211, end: 20090205
  4. SILDENAFIL CITRATE [Suspect]
     Dosage: 20 MG, 3X/DAY
     Dates: start: 20090205, end: 20090515
  5. SILDENAFIL CITRATE [Suspect]
     Dosage: 40 MG, 3X/DAY
     Dates: start: 20090519, end: 20090625
  6. SILDENAFIL CITRATE [Suspect]
     Dosage: 80 MG, 3X/DAY
     Dates: start: 20090626, end: 20090731
  7. OXYCODONE [Concomitant]
     Indication: SICKLE CELL ANAEMIA
     Dosage: 15 MG, AS NEEDED
  8. OXYCONTIN [Concomitant]
     Indication: SICKLE CELL ANAEMIA
     Dosage: 100 MG, 1X/DAY
  9. LASIX [Concomitant]
     Indication: OEDEMA
  10. LISINOPRIL [Concomitant]
     Indication: BLOOD PRESSURE
     Dosage: 10 MG, 1X/DAY
     Route: 048
  11. HYDROXYUREA [Concomitant]
     Indication: SICKLE CELL ANAEMIA
     Dosage: 2500 MG, 1X/DAY
     Route: 048
     Dates: start: 20070627
  12. HYDROCHLOROTHIAZIDE [Concomitant]
     Indication: HYPERTENSION
     Dosage: 25 MG, AS NEEDED
     Route: 048
     Dates: start: 20061016
  13. FOLIC ACID [Concomitant]
     Indication: SICKLE CELL ANAEMIA
     Dosage: 1 MG, 1X/DAY
     Route: 048
  14. DOCUSATE [Concomitant]
     Indication: CONSTIPATION
     Dosage: 2 TABLETS
     Route: 048
     Dates: start: 20071205
  15. ERYTHROPOIETIN [Concomitant]
     Indication: ANAEMIA
     Dosage: 10000  UT
     Route: 058
     Dates: start: 20090325
  16. PHENERGAN ^AVENTIS PHARMA^ [Concomitant]
     Indication: NAUSEA
     Dosage: 25 MG, AS NEEDED
     Route: 048
  17. SYNTHROID [Concomitant]
     Indication: HYPOTHYROIDISM
     Dosage: 125 MCG
     Route: 048
     Dates: start: 20070630
  18. POTASSIUM CHLORIDE [Concomitant]
     Indication: ROUTINE HEALTH MAINTENANCE
     Dosage: 20 MG, 1X/DAY
     Route: 048
     Dates: start: 20090626
  19. DEFERASIROX [Concomitant]
     Dosage: 2500 MG, 1X/DAY
     Route: 048

REACTIONS (1)
  - SICKLE CELL ANAEMIA WITH CRISIS [None]
